FAERS Safety Report 7580866-7 (Version None)
Quarter: 2011Q2

REPORT INFORMATION
  Report Type: 
  Country: None (occurrence: None)
  Receive Date: 20110629
  Receipt Date: 20110627
  Transmission Date: 20111010
  Serious: Yes (Other)
  Sender: FDA-Public Use
  Company Number: US-PFIZER INC-2011142899

PATIENT
  Sex: Female
  Weight: 102.4 kg

DRUGS (8)
  1. LYRICA [Suspect]
     Indication: FIBROMYALGIA
     Dosage: 150 MG, 1X/DAY
     Route: 048
     Dates: start: 20100101
  2. LYRICA [Suspect]
     Indication: NEURALGIA
     Dosage: 150 MG, 3X/DAY
  3. FLEXERIL [Concomitant]
     Dosage: UNK, AS NEEDED
  4. CYMBALTA [Concomitant]
     Dosage: UNK
  5. LYRICA [Suspect]
     Indication: ARTHRITIS
     Dosage: 150 MG, 2X/DAY
  6. AMBIEN [Concomitant]
     Dosage: UNK, AS NEEDED
  7. DICLOFENAC [Concomitant]
     Indication: ARTHRITIS
     Dosage: UNK
  8. PREVACID [Concomitant]
     Dosage: UNK

REACTIONS (1)
  - RENAL DISORDER [None]
